FAERS Safety Report 6902716-1 (Version None)
Quarter: 2010Q3

REPORT INFORMATION
  Report Type: 
  Country: None (occurrence: None)
  Receive Date: 20100803
  Receipt Date: 20080805
  Transmission Date: 20110219
  Serious: Yes (Other)
  Sender: FDA-Public Use
  Company Number: US-PFIZER INC-2008064348

PATIENT
  Sex: Female
  Weight: 114.3 kg

DRUGS (7)
  1. LYRICA [Suspect]
     Indication: FIBROMYALGIA
     Dates: start: 20080701
  2. FLONASE [Concomitant]
  3. ANTIHISTAMINES [Concomitant]
  4. CYMBALTA [Concomitant]
  5. TOPROL-XL [Concomitant]
  6. PREVACID [Concomitant]
  7. LEVOTHYROXINE [Concomitant]

REACTIONS (4)
  - DIZZINESS [None]
  - DRUG INEFFECTIVE [None]
  - SOMNOLENCE [None]
  - WEIGHT INCREASED [None]
